FAERS Safety Report 6257069-1 (Version None)
Quarter: 2009Q3

REPORT INFORMATION
  Report Type: 
  Country: None (occurrence: None)
  Receive Date: 20090706
  Receipt Date: 20090623
  Transmission Date: 20100115
  Serious: Yes (Hospitalization)
  Sender: FDA-Public Use
  Company Number: A0795227A

PATIENT
  Age: 61 Year
  Sex: Female

DRUGS (1)
  1. AVANDAMET [Suspect]
     Route: 065
     Dates: start: 20060410, end: 20090109

REACTIONS (1)
  - RENAL FAILURE [None]
